FAERS Safety Report 20939733 (Version 2)
Quarter: 2022Q4

REPORT INFORMATION
  Report Type: Spontaneous
  Country: US (occurrence: US)
  Receive Date: 20220609
  Receipt Date: 20221007
  Transmission Date: 20230112
  Serious: No
  Sender: FDA-Public Use
  Company Number: US-MYLANLABS-2022M1034356

PATIENT

DRUGS (1)
  1. POTASSIUM CHLORIDE [Suspect]
     Active Substance: POTASSIUM CHLORIDE
     Indication: Mineral supplementation
     Dosage: UNK

REACTIONS (2)
  - Product residue present [Unknown]
  - Drug ineffective [Unknown]
